FAERS Safety Report 8268500-4 (Version None)
Quarter: 2012Q2

REPORT INFORMATION
  Report Type: 
  Country: None (occurrence: None)
  Receive Date: 20120409
  Receipt Date: 20120405
  Transmission Date: 20120825
  Serious: Yes (Death, Hospitalization)
  Sender: FDA-Public Use
  Company Number: US-GLAXOSMITHKLINE-A0797623A

PATIENT
  Age: 75 Year
  Sex: Female

DRUGS (3)
  1. ROSIGLITAZONE MALEATE [Suspect]
     Indication: DIABETES MELLITUS
     Route: 048
  2. ASPIRIN [Concomitant]
  3. INSULIN [Concomitant]

REACTIONS (5)
  - MYOCARDIAL INFARCTION [None]
  - BLOOD DISORDER [None]
  - CORONARY ARTERY DISEASE [None]
  - CARDIAC FAILURE [None]
  - RENAL FAILURE [None]
